FAERS Safety Report 24988969 (Version 1)
Quarter: 2025Q1

REPORT INFORMATION
  Report Type: Spontaneous
  Country: GB (occurrence: GB)
  Receive Date: 20250220
  Receipt Date: 20250220
  Transmission Date: 20250409
  Serious: Yes (Other)
  Sender: AUROBINDO
  Company Number: GB-MHRA-34608847

PATIENT
  Sex: Female

DRUGS (2)
  1. METRONIDAZOLE [Suspect]
     Active Substance: METRONIDAZOLE
     Indication: Tooth infection
     Route: 065
  2. CARBAMAZEPINE [Suspect]
     Active Substance: CARBAMAZEPINE
     Indication: Epilepsy
     Dosage: 1200 MILLIGRAM, ONCE A DAY
     Route: 065

REACTIONS (7)
  - Dysarthria [Unknown]
  - Drug interaction [Unknown]
  - Malaise [Unknown]
  - Nausea [Unknown]
  - Balance disorder [Unknown]
  - Vision blurred [Unknown]
  - Toxicity to various agents [Unknown]
